FAERS Safety Report 9214456 (Version 1)
Quarter: 2013Q2

REPORT INFORMATION
  Report Type: Report from Study
  Country: DE (occurrence: DE)
  Receive Date: 20130405
  Receipt Date: 20130405
  Transmission Date: 20140414
  Serious: Yes (Other)
  Sender: FDA-Public Use
  Company Number: DE-ABBOTT-13P-062-1071842-00

PATIENT
  Age: 34 Year
  Sex: Female
  Weight: 71 kg

DRUGS (3)
  1. HUMIRA [Suspect]
     Indication: CROHN^S DISEASE
     Route: 058
     Dates: start: 20090707, end: 201212
  2. HUMIRA [Suspect]
     Route: 058
     Dates: start: 201212
  3. THYRONAJOD [Concomitant]
     Indication: PRODUCT USED FOR UNKNOWN INDICATION

REACTIONS (5)
  - Pulpitis dental [Not Recovered/Not Resolved]
  - Purulent discharge [Not Recovered/Not Resolved]
  - Teeth brittle [Not Recovered/Not Resolved]
  - Neurodermatitis [Not Recovered/Not Resolved]
  - Poor dental condition [Not Recovered/Not Resolved]
